FAERS Safety Report 10488627 (Version 2)
Quarter: 2014Q4

REPORT INFORMATION
  Report Type: Spontaneous
  Country: US (occurrence: None)
  Receive Date: 20140930
  Receipt Date: 20141021
  Transmission Date: 20150528
  Serious: Yes (Hospitalization)
  Sender: FDA-Public Use
  Company Number: QSC-2014-0648

PATIENT
  Age: 49 Year
  Sex: Male

DRUGS (11)
  1. COLACE [Concomitant]
     Active Substance: DOCUSATE SODIUM
  2. ASA [Concomitant]
     Active Substance: ASPIRIN
  3. TORSEMIDE. [Concomitant]
     Active Substance: TORSEMIDE
  4. CALCITROL [Concomitant]
     Active Substance: CALCITRIOL
  5. H.P. ACTHAR [Suspect]
     Active Substance: CORTICOTROPIN
     Indication: IGA NEPHROPATHY
     Dosage: 80 UNITS
     Dates: start: 20140731
  6. NADOLOL. [Concomitant]
     Active Substance: NADOLOL
  7. LIPITOR [Concomitant]
     Active Substance: ATORVASTATIN CALCIUM
  8. KEPPRA [Concomitant]
     Active Substance: LEVETIRACETAM
  9. RIFAXIMIN [Concomitant]
     Active Substance: RIFAXIMIN
  10. CEFTRIAXONE. [Concomitant]
     Active Substance: CEFTRIAXONE
  11. LISINOPRIL. [Concomitant]
     Active Substance: LISINOPRIL

REACTIONS (14)
  - Hepatic encephalopathy [None]
  - Gastrointestinal haemorrhage [None]
  - Pneumonia [None]
  - Haemodialysis [None]
  - Diarrhoea [None]
  - Laceration [None]
  - Deep vein thrombosis [None]
  - Fall [None]
  - Confusional state [None]
  - Hepatic cirrhosis [None]
  - Balance disorder [None]
  - Disease complication [None]
  - Status epilepticus [None]
  - Uraemic encephalopathy [None]

NARRATIVE: CASE EVENT DATE: 2014
